FAERS Safety Report 19523740 (Version 1)
Quarter: 2021Q3

REPORT INFORMATION
  Report Type: Spontaneous
  Country: CA (occurrence: CA)
  Receive Date: 20210712
  Receipt Date: 20210712
  Transmission Date: 20211014
  Serious: Yes (Disabling, Other)
  Sender: FDA-Public Use
  Company Number: CA-SA-2021SA222862

PATIENT
  Age: 76 Year
  Sex: Female
  Weight: 60 kg

DRUGS (6)
  1. TAXOTERE [Suspect]
     Active Substance: DOCETAXEL
     Route: 042
  2. PERJETA [Concomitant]
     Active Substance: PERTUZUMAB
     Dosage: UNK
     Route: 042
  3. LASIX [Concomitant]
     Active Substance: FUROSEMIDE
  4. HERCEPTIN [Concomitant]
     Active Substance: TRASTUZUMAB
     Route: 042
  5. VITAMIN C [Concomitant]
     Active Substance: ASCORBIC ACID
  6. IRBESARTAN. [Concomitant]
     Active Substance: IRBESARTAN

REACTIONS (1)
  - Deafness [Not Recovered/Not Resolved]
